FAERS Safety Report 4753043-2 (Version None)
Quarter: 2005Q3

REPORT INFORMATION
  Report Type: 
  Country: None (occurrence: None)
  Receive Date: 20050826
  Receipt Date: 20050815
  Transmission Date: 20060218
  Serious: Yes (Other)
  Sender: FDA-Public Use
  Company Number: CA-MERCK-0508CAN00096

PATIENT
  Age: 72 Year
  Sex: Female
  Weight: 74 kg

DRUGS (11)
  1. FOSAMAX [Suspect]
     Indication: OSTEOPOROSIS
     Route: 048
     Dates: start: 20050305
  2. CHOLECALCIFEROL [Concomitant]
     Indication: OSTEOPOROSIS
     Route: 065
     Dates: start: 20040215, end: 20050601
  3. CHOLECALCIFEROL [Concomitant]
     Route: 065
     Dates: start: 20050601
  4. CALCIUM (UNSPECIFIED) [Concomitant]
     Indication: OSTEOPOROSIS
     Route: 065
     Dates: start: 20040215
  5. PANTOPRAZOLE [Concomitant]
     Indication: GASTRITIS EROSIVE
     Route: 065
     Dates: start: 20011026
  6. VALSARTAN [Concomitant]
     Indication: HYPERTENSION
     Route: 065
     Dates: start: 20020826, end: 20050508
  7. VALSARTAN [Concomitant]
     Route: 065
     Dates: start: 20050508
  8. INDAPAMIDE [Concomitant]
     Indication: HYPERTENSION
     Route: 065
     Dates: start: 20040514, end: 20050508
  9. PENTOSAN POLYSULFATE [Concomitant]
     Indication: CYSTITIS INTERSTITIAL
     Route: 065
     Dates: start: 19990513
  10. LORAZEPAM [Concomitant]
     Indication: ANXIETY
     Route: 065
     Dates: start: 19990129
  11. DOMPERIDONE [Concomitant]
     Indication: DYSPEPSIA
     Route: 065
     Dates: start: 20040514

REACTIONS (1)
  - PULMONARY EMBOLISM [None]
